FAERS Safety Report 6029978-X (Version None)
Quarter: 2009Q1

REPORT INFORMATION
  Report Type: 
  Country: None (occurrence: None)
  Receive Date: 20090107
  Receipt Date: 20090105
  Transmission Date: 20090719
  Serious: Yes (Life-Threatening, Hospitalization, Other)
  Sender: FDA-Public Use
  Company Number: B0549675A

PATIENT
  Age: 61 Year
  Sex: Male

DRUGS (6)
  1. AMOXICILLIN + CLAVULANATE POTASSIUM [Suspect]
     Route: 048
  2. PENICILLIN G [Suspect]
     Indication: ENDOCARDITIS
     Dosage: 1.2G SIX TIMES PER DAY
     Route: 065
  3. CIPROFLOXACIN [Concomitant]
  4. GENTAMICIN [Concomitant]
     Indication: ENDOCARDITIS
  5. CEFTRIAXONE [Concomitant]
     Indication: ENDOCARDITIS
  6. IMIPENEM [Concomitant]

REACTIONS (9)
  - BACTERIAL INFECTION [None]
  - CARDIAC FAILURE [None]
  - CARDIAC MURMUR [None]
  - DRUG INEFFECTIVE [None]
  - DYSPNOEA [None]
  - ENDOCARDITIS [None]
  - PYREXIA [None]
  - STREPTOCOCCAL INFECTION [None]
  - VENTRICULAR TACHYCARDIA [None]
